FAERS Safety Report 13110997 (Version 1)
Quarter: 2017Q1

REPORT INFORMATION
  Report Type: Spontaneous
  Country: US (occurrence: US)
  Receive Date: 20170112
  Receipt Date: 20170112
  Transmission Date: 20170428
  Serious: No
  Sender: FDA-Public Use
  Company Number: US-GE HEALTHCARE MEDICAL DIAGNOSTICS-VISP-PR-1611S-0651

PATIENT
  Age: 64 Year
  Sex: Female

DRUGS (2)
  1. VISIPAQUE [Suspect]
     Active Substance: IODIXANOL
     Indication: PRODUCT USED FOR UNKNOWN INDICATION
     Dosage: DOSE NOT REPORTED
     Route: 065
     Dates: start: 20161011, end: 20161011
  2. VISIPAQUE [Suspect]
     Active Substance: IODIXANOL
     Indication: DIAGNOSTIC PROCEDURE

REACTIONS (1)
  - Rash pruritic [Unknown]

NARRATIVE: CASE EVENT DATE: 20161014
